FAERS Safety Report 9336474 (Version 1)
Quarter: 2013Q2

REPORT INFORMATION
  Report Type: Spontaneous
  Country: IT (occurrence: IT)
  Receive Date: 20130607
  Receipt Date: 20130607
  Transmission Date: 20140414
  Serious: Yes (Hospitalization)
  Sender: FDA-Public Use
  Company Number: IT-ACCORD-017887

PATIENT
  Age: 42 Year
  Sex: Female

DRUGS (4)
  1. CYCLOSPORINE [Concomitant]
     Indication: LUNG TRANSPLANT
  2. TACROLIMUS [Suspect]
     Indication: LUNG TRANSPLANT
  3. PREDNISONE [Concomitant]
     Indication: LUNG TRANSPLANT
  4. AZATHIOPRINE [Concomitant]
     Indication: LUNG TRANSPLANT

REACTIONS (4)
  - Intracranial pressure increased [Recovering/Resolving]
  - Posterior reversible encephalopathy syndrome [Recovering/Resolving]
  - Brain herniation [Unknown]
  - Off label use [Unknown]
